FAERS Safety Report 5718090-2 (Version None)
Quarter: 2008Q2

REPORT INFORMATION
  Report Type: 
  Country: None (occurrence: None)
  Receive Date: 20080425
  Receipt Date: 20080417
  Transmission Date: 20081010
  Serious: Yes (Disabling)
  Sender: FDA-Public Use
  Company Number: US-MERCK-0804USA03975

PATIENT
  Age: 33 Year
  Sex: Female

DRUGS (9)
  1. ZOCOR [Suspect]
     Indication: BLOOD CHOLESTEROL
     Route: 048
     Dates: start: 20060401, end: 20080301
  2. LOMOTIL [Concomitant]
     Route: 065
  3. CYMBALTA [Concomitant]
     Route: 065
  4. TRICOR [Concomitant]
     Route: 065
  5. PLAVIX [Concomitant]
     Route: 065
  6. SOMA [Concomitant]
     Route: 065
  7. ZANAFLEX [Concomitant]
     Route: 065
  8. VYTORIN [Suspect]
     Route: 048
     Dates: start: 20080401
  9. [THERAPY UNSPECIFIED] [Concomitant]
     Route: 065

REACTIONS (6)
  - CARDIAC DISORDER [None]
  - DIARRHOEA HAEMORRHAGIC [None]
  - HAEMATEMESIS [None]
  - LOSS OF CONSCIOUSNESS [None]
  - MIGRAINE [None]
  - NEOPLASM MALIGNANT [None]
